FAERS Safety Report 24356238 (Version 1)
Quarter: 2024Q3

REPORT INFORMATION
  Report Type: Spontaneous
  Country: JP (occurrence: JP)
  Receive Date: 20240924
  Receipt Date: 20240924
  Transmission Date: 20241017
  Serious: Yes (Other)
  Sender: RANBAXY
  Company Number: JP-SUN PHARMACEUTICAL INDUSTRIES LTD-2024RR-469569

PATIENT
  Age: 73 Year
  Sex: Female

DRUGS (8)
  1. OXALIPLATIN [Suspect]
     Active Substance: OXALIPLATIN
     Indication: Chemotherapy
     Dosage: XELOX THERAPY: 130 MILLIGRAM/SQ. METER DAY 1
     Route: 040
  2. CAPECITABINE [Suspect]
     Active Substance: CAPECITABINE
     Indication: Chemotherapy
     Dosage: XELOX THERAPY: 2000 MILLIGRAM, DAY 1-14 Q3W
     Route: 065
  3. DOCETAXEL [Suspect]
     Active Substance: DOCETAXEL\DOCETAXEL ANHYDROUS
     Indication: Chemotherapy
     Dosage: DS THERAPY: 50 MILLIGRAM, DAY 1
     Route: 065
  4. PACLITAXEL [Suspect]
     Active Substance: PACLITAXEL
     Indication: Chemotherapy
     Dosage: 80 MILLIGRAM/SQ. METER DAY 1,8, 15 Q4W, AS FOURTH-LINE THERAPY, DAY 1,8, 15 Q4W
     Route: 065
  5. TEGAFUR [Suspect]
     Active Substance: TEGAFUR
     Indication: Chemotherapy
     Dosage: 100 MG DAY 1-14 Q3W
     Route: 065
  6. RAMUCIRUMAB [Suspect]
     Active Substance: RAMUCIRUMAB
     Indication: Chemotherapy
     Dosage: 8 MILLIGRAM/KILOGRAM DAY 1,15, AS FOURTH-LINE THERAPY
     Route: 065
  7. GIMERACIL [Suspect]
     Active Substance: GIMERACIL
     Indication: Chemotherapy
     Dosage: 100 MG DAY 1-14 Q3W
     Route: 065
  8. OTERACIL [Suspect]
     Active Substance: OTERACIL
     Indication: Chemotherapy
     Dosage: 100 MG DAY 1-14 Q3W
     Route: 065

REACTIONS (4)
  - Disease progression [Unknown]
  - Jaundice cholestatic [Unknown]
  - Myelosuppression [Unknown]
  - Treatment failure [Unknown]
